FAERS Safety Report 9176084 (Version 1)
Quarter: 2013Q1

REPORT INFORMATION
  Report Type: Spontaneous
  Country: US (occurrence: US)
  Receive Date: 20130320
  Receipt Date: 20130320
  Transmission Date: 20140127
  Serious: Yes (Other)
  Sender: FDA-Public Use
  Company Number: US-RB-031321-11

PATIENT
  Age: 30 Year
  Sex: Female

DRUGS (6)
  1. SUBOXONE TABLET [Suspect]
     Indication: DRUG DEPENDENCE
     Route: 060
     Dates: start: 20091111, end: 20110807
  2. GENERIC BUPRENORPHINE [Suspect]
     Indication: DRUG DEPENDENCE
     Route: 060
     Dates: start: 20110808
  3. LEVOTHYROXINE [Concomitant]
     Indication: HYPOTHYROIDISM
     Route: 048
  4. CALCIUM [Concomitant]
     Indication: PREGNANCY
     Dosage: 1ST TRIMESTER
     Route: 048
  5. PRENATAL VITAMINS [Concomitant]
     Indication: PREGNANCY
     Dosage: DOSING DETAILS NOT PROVIDED; 1ST TRIMESTER
     Route: 065
  6. VITAMIN D3 [Concomitant]
     Indication: PRODUCT USED FOR UNKNOWN INDICATION
     Route: 065
     Dates: start: 201101

REACTIONS (2)
  - Exposure during pregnancy [Recovered/Resolved]
  - Gestational hypertension [Unknown]
